FAERS Safety Report 7585817-7 (Version None)
Quarter: 2011Q2

REPORT INFORMATION
  Report Type: 
  Country: None (occurrence: None)
  Receive Date: 20110624
  Receipt Date: 20110610
  Transmission Date: 20111010
  Serious: Yes (Other)
  Sender: FDA-Public Use
  Company Number: AUR-APL-2011-02476

PATIENT
  Age: 28 Year
  Sex: Male

DRUGS (4)
  1. ARIPRAZOLE (ARIPRAZOLE) [Concomitant]
  2. VALPROATE SODIUM [Concomitant]
  3. MIRTAZAPINE [Suspect]
     Indication: PRODUCT USED FOR UNKNOWN INDICATION
     Dates: start: 20110504
  4. CLOZAPINE [Concomitant]

REACTIONS (2)
  - WHITE BLOOD CELL COUNT DECREASED [None]
  - NEUTROPENIA [None]
